FAERS Safety Report 5339735-5 (Version None)
Quarter: 2007Q2

REPORT INFORMATION
  Report Type: 
  Country: None (occurrence: None)
  Receive Date: 20070531
  Receipt Date: 20070524
  Transmission Date: 20071010
  Serious: Yes (Other)
  Sender: FDA-Public Use
  Company Number: PHBS2007BR07262

PATIENT
  Age: 5 Year
  Sex: Male
  Weight: 15 kg

DRUGS (3)
  1. CATAFLAM [Suspect]
     Indication: PHARYNGOLARYNGEAL PAIN
     Dosage: 15 DRP, Q8H
     Route: 048
     Dates: start: 20070422
  2. RIVOTRIL [Concomitant]
     Indication: CONVULSION
     Dosage: UNK, Q12H
     Route: 048
  3. VALPROATE SODIUM [Concomitant]
     Indication: CONVULSION
     Dosage: 1 ML, Q8H
     Route: 048

REACTIONS (7)
  - DYSPNOEA [None]
  - HYPONATRAEMIA [None]
  - LAZINESS [None]
  - NASOPHARYNGITIS [None]
  - PNEUMONIA [None]
  - PYREXIA [None]
  - VOMITING [None]
